FAERS Safety Report 5283419-9 (Version None)
Quarter: 2007Q2

REPORT INFORMATION
  Report Type: 
  Country: None (occurrence: None)
  Receive Date: 20070402
  Receipt Date: 20070323
  Transmission Date: 20071010
  Serious: Yes (Hospitalization)
  Sender: FDA-Public Use
  Company Number: JP-JNJFOC-20070305959

PATIENT
  Sex: Female
  Weight: 44.6 kg

DRUGS (9)
  1. MICONAZOLE [Suspect]
     Route: 048
     Dates: start: 20070202, end: 20070215
  2. MICONAZOLE [Suspect]
     Indication: GASTROINTESTINAL CANDIDIASIS
     Route: 048
     Dates: start: 20070202, end: 20070215
  3. WARFARIN SODIUM [Interacting]
     Indication: ATRIAL FIBRILLATION
     Route: 048
     Dates: start: 20070130, end: 20070225
  4. PRAVASTATIN SODIUM [Concomitant]
     Route: 048
  5. DIGOXIN [Concomitant]
     Route: 048
  6. NATEGLINIDE [Concomitant]
     Route: 048
  7. DIMETICONE [Concomitant]
     Route: 048
  8. MAGNESIUM OXIDE [Concomitant]
     Route: 048
  9. FAMOTIDINE [Concomitant]
     Indication: GASTRIC ULCER
     Route: 048

REACTIONS (2)
  - DRUG INTERACTION [None]
  - HAEMORRHAGIC DIATHESIS [None]
